FAERS Safety Report 16977326 (Version 5)
Quarter: 2020Q3

REPORT INFORMATION
  Report Type: Report from Study
  Country: None (occurrence: US)
  Receive Date: 20191031
  Receipt Date: 20200707
  Transmission Date: 20201102
  Serious: Yes (Hospitalization)
  Sender: FDA-Public Use
  Company Number: US-ABBVIE-19K-163-2926421-00

PATIENT
  Age: 57 Year
  Sex: Female
  Weight: 66.74 kg

DRUGS (9)
  1. HUMIRA [Suspect]
     Active Substance: ADALIMUMAB
     Indication: CROHN^S DISEASE
     Dosage: DAY 1
     Route: 058
     Dates: start: 20190927, end: 20190927
  2. HUMIRA [Suspect]
     Active Substance: ADALIMUMAB
     Route: 058
     Dates: start: 202006
  3. HUMIRA [Suspect]
     Active Substance: ADALIMUMAB
     Indication: CROHN^S DISEASE
     Route: 058
     Dates: start: 201903, end: 201906
  4. IMURAN [Concomitant]
     Active Substance: AZATHIOPRINE
     Indication: CROHN^S DISEASE
  5. VITAMIN D [Concomitant]
     Active Substance: VITAMIN D NOS
     Indication: VITAMIN SUPPLEMENTATION
  6. HUMIRA [Suspect]
     Active Substance: ADALIMUMAB
     Route: 058
     Dates: start: 202006, end: 202006
  7. DYAZIDE [Concomitant]
     Active Substance: HYDROCHLOROTHIAZIDE\TRIAMTERENE
     Indication: HYPERTENSION
  8. HUMIRA [Suspect]
     Active Substance: ADALIMUMAB
     Dosage: DAY 15
     Route: 058
     Dates: start: 20191011, end: 20191011
  9. HUMIRA [Suspect]
     Active Substance: ADALIMUMAB
     Route: 058
     Dates: start: 20191025, end: 202006

REACTIONS (36)
  - Chills [Recovered/Resolved]
  - Vomiting [Recovering/Resolving]
  - Intentional product misuse [Unknown]
  - Injection site pruritus [Not Recovered/Not Resolved]
  - Rectal haemorrhage [Unknown]
  - Anxiety [Recovering/Resolving]
  - Rash [Not Recovered/Not Resolved]
  - Rhinorrhoea [Unknown]
  - Diarrhoea [Not Recovered/Not Resolved]
  - Paraesthesia [Unknown]
  - Crohn^s disease [Unknown]
  - Weight decreased [Recovered/Resolved]
  - Cough [Recovered/Resolved]
  - Frequent bowel movements [Not Recovered/Not Resolved]
  - Loss of personal independence in daily activities [Not Recovered/Not Resolved]
  - Large intestinal ulcer [Unknown]
  - Faeces soft [Not Recovered/Not Resolved]
  - Depressed mood [Not Recovered/Not Resolved]
  - Abdominal pain upper [Unknown]
  - Drug ineffective [Unknown]
  - Dyspnoea [Recovering/Resolving]
  - Abdominal discomfort [Unknown]
  - Overdose [Recovered/Resolved]
  - Sneezing [Unknown]
  - Hypoaesthesia [Unknown]
  - Abdominal distension [Unknown]
  - Nasopharyngitis [Unknown]
  - Faeces hard [Recovering/Resolving]
  - Dry eye [Unknown]
  - Pruritus [Unknown]
  - Nausea [Recovered/Resolved]
  - Nausea [Not Recovered/Not Resolved]
  - Intentional product misuse [Recovered/Resolved]
  - Pyrexia [Recovered/Resolved]
  - Glaucoma [Not Recovered/Not Resolved]
  - Productive cough [Unknown]

NARRATIVE: CASE EVENT DATE: 2019
